FAERS Safety Report 18821566 (Version 1)
Quarter: 2021Q1

REPORT INFORMATION
  Report Type: Spontaneous
  Country: US (occurrence: US)
  Receive Date: 20210202
  Receipt Date: 20210202
  Transmission Date: 20210419
  Serious: Yes (Hospitalization, Other)
  Sender: FDA-Public Use
  Company Number: US-HQ-000114

PATIENT
  Age: 46 Year
  Sex: Female

DRUGS (5)
  1. LINEZOLID. [Suspect]
     Active Substance: LINEZOLID
     Indication: SEPSIS
     Route: 065
  2. DEXMEDETOMIDINE. [Concomitant]
     Active Substance: DEXMEDETOMIDINE
     Indication: SEDATION
     Route: 065
  3. DOXYCYCLINE. [Concomitant]
     Active Substance: DOXYCYCLINE
     Indication: SEPSIS
     Route: 065
  4. FENTANYL. [Suspect]
     Active Substance: FENTANYL
     Indication: SEDATION
     Route: 065
  5. PROPOFOL. [Concomitant]
     Active Substance: PROPOFOL
     Indication: SEDATION
     Route: 065

REACTIONS (1)
  - Serotonin syndrome [Recovered/Resolved]
